FAERS Safety Report 9598566 (Version 1)
Quarter: 2013Q4

REPORT INFORMATION
  Report Type: Spontaneous
  Country: US (occurrence: US)
  Receive Date: 20131004
  Receipt Date: 20131004
  Transmission Date: 20140711
  Serious: No
  Sender: FDA-Public Use
  Company Number: US-AMGEN-USASP2013024433

PATIENT
  Age: 53 Year
  Sex: Female
  Weight: 53.52 kg

DRUGS (16)
  1. ENBREL [Suspect]
     Indication: RHEUMATOID ARTHRITIS
     Dosage: 50 MG, QWK
     Route: 058
  2. PROLIA [Concomitant]
     Dosage: 60 MG/ML, UNK
  3. PROCRIT [Concomitant]
     Dosage: 2000/ML  UNK, UNK
     Route: 058
  4. PHENERGAN                          /00033001/ [Concomitant]
     Dosage: 25 MG, UNK
     Route: 048
  5. RESTASIS [Concomitant]
     Dosage: 0.05 %, UNK
     Route: 048
  6. SOMA [Concomitant]
     Dosage: 350 MG, UNK
     Route: 048
  7. METHOTREXATE [Concomitant]
     Dosage: 2.5 MG, UNK
     Route: 048
  8. CODEINE SULPHATE [Concomitant]
     Dosage: 15 MG, UNK
     Route: 048
  9. ACTONEL [Concomitant]
     Dosage: 30 MG, UNK
     Route: 048
  10. WARFARIN [Concomitant]
     Dosage: 3 MG, UNK
     Route: 048
  11. ERGOCALCIFEROL [Concomitant]
     Dosage: 50000 UNIT, UNK
     Route: 048
  12. FLEXERIL                           /00428402/ [Concomitant]
     Dosage: 5 MG, UNK
     Route: 048
  13. FOLIC ACID [Concomitant]
     Dosage: UNK
     Route: 048
  14. ALBUTEROL                          /00139501/ [Concomitant]
     Dosage: 90 MUG (MCG RF IN) , UNK
  15. NASAREL                            /00456601/ [Concomitant]
     Dosage: 29 MUG, (MCG IN )UNK
  16. QVAR [Concomitant]
     Dosage: 40 MUG, (MCG IN )UNK

REACTIONS (2)
  - Joint effusion [Unknown]
  - Oedema peripheral [Unknown]
